FAERS Safety Report 5321377-9 (Version None)
Quarter: 2007Q2

REPORT INFORMATION
  Report Type: 
  Country: None (occurrence: None)
  Receive Date: 20070507
  Receipt Date: 20070507
  Transmission Date: 20071010
  Serious: Yes (Hospitalization)
  Sender: FDA-Public Use
  Company Number: None

PATIENT
  Age: 76 Year
  Sex: Male
  Weight: 101 kg

DRUGS (2)
  1. SIMVASTATIN [Suspect]
     Indication: HYPERLIPIDAEMIA
     Dosage: 80MG BY MOUTH AT BEDTIME
     Route: 048
     Dates: start: 20040312, end: 20070216
  2. VERAPAMIL [Suspect]
     Indication: BLOOD PRESSURE
     Dosage: 240MG BY MOUTH DAILY
     Route: 048
     Dates: start: 20041203, end: 20070216

REACTIONS (2)
  - HEPATIC ENZYME INCREASED [None]
  - RHABDOMYOLYSIS [None]
